FAERS Safety Report 10008949 (Version 1)
Quarter: 2014Q1

REPORT INFORMATION
  Report Type: Spontaneous
  Country: US (occurrence: US)
  Receive Date: 20140313
  Receipt Date: 20140313
  Transmission Date: 20141002
  Serious: No
  Sender: FDA-Public Use
  Company Number: US-INCYTE CORPORATION-2012IN001410

PATIENT
  Sex: Male

DRUGS (6)
  1. JAKAFI [Suspect]
     Indication: MYELOFIBROSIS
  2. AMOXICILLIN [Concomitant]
  3. NOVOLIN 70/30 [Concomitant]
  4. LISINOPRIL [Concomitant]
  5. AMLODIPINE [Concomitant]
  6. PANTOPRAZOLE [Concomitant]

REACTIONS (2)
  - Tooth infection [Unknown]
  - Platelet count decreased [Unknown]
